FAERS Safety Report 24318968 (Version 1)
Quarter: 2024Q3

REPORT INFORMATION
  Report Type: Spontaneous
  Country: JP (occurrence: JP)
  Receive Date: 20240913
  Receipt Date: 20240913
  Transmission Date: 20241016
  Serious: Yes (Other)
  Sender: PFIZER
  Company Number: JP-PFIZER INC-PV202400118383

PATIENT
  Age: 44 Year
  Sex: Female
  Weight: 53 kg

DRUGS (7)
  1. METHOTREXATE SODIUM [Suspect]
     Active Substance: METHOTREXATE SODIUM
     Indication: Acute myeloid leukaemia
     Dosage: 15 MG
     Route: 037
  2. CYTARABINE [Concomitant]
     Active Substance: CYTARABINE
     Indication: Acute myeloid leukaemia
     Dosage: DAYS 1-7
  3. CYTARABINE [Concomitant]
     Active Substance: CYTARABINE
     Dosage: 2 G/M2 X 2 DAYS 1-5
  4. CYTARABINE [Concomitant]
     Active Substance: CYTARABINE
     Dosage: 40 MG
     Route: 037
  5. PREDNISOLONE [Concomitant]
     Active Substance: PREDNISOLONE
     Indication: Acute myeloid leukaemia
     Dosage: 100 MG, DAILY
  6. PREDNISOLONE [Concomitant]
     Active Substance: PREDNISOLONE
     Dosage: 20 MG
     Route: 037
  7. DAUNORUBICIN [Concomitant]
     Active Substance: DAUNORUBICIN
     Indication: Acute myeloid leukaemia
     Dosage: 50 MG/M2, DAYS 1-5

REACTIONS (7)
  - CSF cell count decreased [Unknown]
  - Subdural haematoma [Unknown]
  - Extradural haematoma [Unknown]
  - Haemorrhage [Unknown]
  - Central nervous system leukaemia [Unknown]
  - Headache [Unknown]
  - Vomiting [Unknown]
